FAERS Safety Report 4345782-2 (Version None)
Quarter: 2004Q2

REPORT INFORMATION
  Report Type: 
  Country: None (occurrence: None)
  Receive Date: 20040421
  Receipt Date: 20040401
  Transmission Date: 20050107
  Serious: Yes (Hospitalization)
  Sender: FDA-Public Use
  Company Number: EWC040438759

PATIENT
  Age: 53 Year
  Sex: Female

DRUGS (3)
  1. HUMALOG [Suspect]
     Indication: DIABETES MELLITUS
     Dosage: 26 U DAY
     Dates: start: 20020101
  2. GLUCOPHAGE [Concomitant]
  3. STARLIX [Concomitant]

REACTIONS (8)
  - APHAGIA [None]
  - CYSTITIS [None]
  - EAR INFECTION [None]
  - FATIGUE [None]
  - HYPOGLYCAEMIA [None]
  - MALAISE [None]
  - MEDICAL DEVICE COMPLICATION [None]
  - PHARMACEUTICAL PRODUCT COMPLAINT [None]
